FAERS Safety Report 24590008 (Version 1)
Quarter: 2024Q4

REPORT INFORMATION
  Report Type: Spontaneous
  Country: US (occurrence: None)
  Receive Date: 20241106
  Receipt Date: 20241106
  Transmission Date: 20250115
  Serious: Yes (Disabling)
  Sender: Public
  Company Number: None

PATIENT
  Sex: Male
  Weight: 10.8 kg

DRUGS (5)
  1. TRIAMCINOLONE ACETONIDE [Suspect]
     Active Substance: TRIAMCINOLONE ACETONIDE
     Indication: Topical steroid withdrawal reaction
     Dosage: TWICE A DAY TRANSDERMAL
     Route: 062
     Dates: start: 20230209, end: 20240411
  2. HYDROCORTISONE [Suspect]
     Active Substance: HYDROCORTISONE
     Indication: Topical steroid withdrawal reaction
     Dosage: TWICE  DY TRANSDERMAL?
     Route: 062
     Dates: start: 20231109, end: 20240208
  3. VITAMIN D [Concomitant]
     Active Substance: VITAMIN D NOS
  4. carlsons zinc [Concomitant]
  5. organic mary ruths [Concomitant]

REACTIONS (11)
  - Topical steroid withdrawal reaction [None]
  - Alopecia [None]
  - Skin exfoliation [None]
  - Erythema [None]
  - Madarosis [None]
  - Skin atrophy [None]
  - Screaming [None]
  - Discomfort [None]
  - Middle insomnia [None]
  - Poor quality sleep [None]
  - Eczema [None]
